FAERS Safety Report 5917611-4 (Version None)
Quarter: 2008Q4

REPORT INFORMATION
  Report Type: 
  Country: None (occurrence: None)
  Receive Date: 20081014
  Receipt Date: 20081006
  Transmission Date: 20090506
  Serious: Yes (Death)
  Sender: FDA-Public Use
  Company Number: PR-MERCK-0810USA01005

PATIENT

DRUGS (1)
  1. INVANZ [Suspect]
     Route: 065

REACTIONS (3)
  - DEATH [None]
  - DRUG RESISTANCE [None]
  - KLEBSIELLA INFECTION [None]
